FAERS Safety Report 9474826 (Version 1)
Quarter: 2013Q3

REPORT INFORMATION
  Report Type: Spontaneous
  Country: US (occurrence: GB)
  Receive Date: 20130823
  Receipt Date: 20130823
  Transmission Date: 20140515
  Serious: Yes (Other)
  Sender: FDA-Public Use
  Company Number: PHHY2013GB089167

PATIENT
  Sex: 0

DRUGS (2)
  1. SULFASALAZINE [Suspect]
  2. AMOXICILLIN [Suspect]

REACTIONS (21)
  - Drug reaction with eosinophilia and systemic symptoms [Recovering/Resolving]
  - Lethargy [Unknown]
  - Pyrexia [Unknown]
  - Oropharyngeal pain [Unknown]
  - Lymphadenopathy [Unknown]
  - Pharyngitis [Unknown]
  - Rash maculo-papular [Unknown]
  - Swelling face [Unknown]
  - Genital ulceration [Unknown]
  - Transaminases increased [Unknown]
  - Lymphocytosis [Unknown]
  - Rash [Unknown]
  - Renal failure acute [Unknown]
  - Oedema [Recovering/Resolving]
  - White blood cell count increased [Unknown]
  - Eosinophilia [Unknown]
  - Disseminated intravascular coagulation [Unknown]
  - Leukocytosis [Unknown]
  - Histiocytosis haematophagic [Unknown]
  - Hepatitis [Unknown]
  - General physical health deterioration [Unknown]
